FAERS Safety Report 9640033 (Version 1)
Quarter: 2013Q4

REPORT INFORMATION
  Report Type: Spontaneous
  Country: US (occurrence: None)
  Receive Date: 20131022
  Receipt Date: 20131022
  Transmission Date: 20140711
  Serious: No
  Sender: FDA-Public Use
  Company Number: None

PATIENT
  Age: 54 Year
  Sex: Female
  Weight: 71.22 kg

DRUGS (1)
  1. LEVOTHYROXINE [Suspect]
     Dosage: 125 MCG 1 TABLET PO
     Route: 048
     Dates: start: 200703

REACTIONS (3)
  - Product substitution issue [None]
  - Therapeutic response unexpected with drug substitution [None]
  - Thyroid function test abnormal [None]
